FAERS Safety Report 7555538-5 (Version None)
Quarter: 2011Q2

REPORT INFORMATION
  Report Type: 
  Country: None (occurrence: None)
  Receive Date: 20110617
  Receipt Date: 20030826
  Transmission Date: 20111010
  Serious: Yes (Hospitalization, Other)
  Sender: FDA-Public Use
  Company Number: PHEH2003US03698

PATIENT
  Sex: Female

DRUGS (7)
  1. GLUCOVANCE [Concomitant]
  2. NORVASC [Concomitant]
  3. NEXIUM [Concomitant]
  4. TOPROL-XL [Concomitant]
  5. PEPCID [Concomitant]
  6. EXELON [Suspect]
     Indication: DEMENTIA ALZHEIMER'S TYPE
     Dosage: 3 MG, BID
     Route: 048
     Dates: start: 20020327
  7. EXELON [Suspect]
     Dosage: 3 MG, QD
     Route: 048

REACTIONS (4)
  - FALL [None]
  - CONCUSSION [None]
  - HIP FRACTURE [None]
  - HYPOKALAEMIA [None]
